FAERS Safety Report 5530420-3 (Version None)
Quarter: 2007Q4

REPORT INFORMATION
  Report Type: 
  Country: None (occurrence: None)
  Receive Date: 20071127
  Receipt Date: 20071127
  Transmission Date: 20080405
  Serious: No
  Sender: FDA-Public Use
  Company Number: None

PATIENT
  Age: 70 Year
  Sex: Male

DRUGS (1)
  1. LINEZOLID [Suspect]
     Indication: CELLULITIS STAPHYLOCOCCAL
     Dosage: 600MG BID PO
     Route: 048
     Dates: start: 20071031, end: 20071113

REACTIONS (2)
  - LEUKOPENIA [None]
  - THROMBOCYTOPENIA [None]
